FAERS Safety Report 4553090-X (Version None)
Quarter: 2005Q1

REPORT INFORMATION
  Report Type: 
  Country: None (occurrence: None)
  Receive Date: 20050113
  Receipt Date: 20041230
  Transmission Date: 20050727
  Serious: Yes (Hospitalization)
  Sender: FDA-Public Use
  Company Number: 200500001

PATIENT
  Age: 21 Day
  Sex: Male

DRUGS (3)
  1. BRIMONIDINE TARTRATE [Suspect]
     Indication: GLAUCOMA
     Dosage: DROP
  2. BETAXOLOL [Suspect]
     Indication: GLAUCOMA
     Dosage: DROP
  3. LATANOPROST [Concomitant]

REACTIONS (19)
  - BRADYCARDIA NEONATAL [None]
  - CYANOSIS NEONATAL [None]
  - DEPRESSED LEVEL OF CONSCIOUSNESS [None]
  - DEVELOPMENTAL DELAY [None]
  - FEEDING PROBLEM IN NEWBORN [None]
  - HYPOTONIA NEONATAL [None]
  - IRIS DISORDER [None]
  - ISCHAEMIA [None]
  - LETHARGY [None]
  - LYMPHOCYTE PERCENTAGE INCREASED [None]
  - MYDRIASIS [None]
  - NEONATAL APNOEIC ATTACK [None]
  - NEONATAL DISORDER [None]
  - NEONATAL HYPOTENSION [None]
  - NEONATAL TACHYPNOEA [None]
  - NEUTROPHIL PERCENTAGE DECREASED [None]
  - PUPILLARY REFLEX IMPAIRED [None]
  - URINE OUTPUT DECREASED [None]
  - WHITE BLOOD CELL COUNT INCREASED [None]
